FAERS Safety Report 18112431 (Version 4)
Quarter: 2021Q1

REPORT INFORMATION
  Report Type: Spontaneous
  Country: ES (occurrence: ES)
  Receive Date: 20200805
  Receipt Date: 20210105
  Transmission Date: 20210419
  Serious: Yes (Other)
  Sender: FDA-Public Use
  Company Number: NVSC2020ES216769

PATIENT
  Age: 24 Year
  Sex: Male

DRUGS (4)
  1. ADALIMUMAB [Suspect]
     Active Substance: ADALIMUMAB
     Indication: HIDRADENITIS
     Dosage: 160 MG, ON DAY 1 (DAY 1)
     Route: 058
  2. ADALIMUMAB [Suspect]
     Active Substance: ADALIMUMAB
     Dosage: 40 MG, QW (MAINTENANCE DOSES)
     Route: 058
  3. ADALIMUMAB [Suspect]
     Active Substance: ADALIMUMAB
     Dosage: 80 MG, ON DAY 15,MAINTENANCE DOSES FROM DAY 29 OF TREATMENT (DAY 15)
     Route: 058
  4. ADALIMUMAB [Suspect]
     Active Substance: ADALIMUMAB
     Dosage: 80 MILLIGRAM, Q2W,MAINTENANCE DOSES OF 80 MG EVERY 2 WEEKS
     Route: 058

REACTIONS (3)
  - Arthritis [Recovering/Resolving]
  - SLE arthritis [Unknown]
  - Lupus-like syndrome [Recovering/Resolving]
